FAERS Safety Report 6806131-0 (Version None)
Quarter: 2010Q2

REPORT INFORMATION
  Report Type: 
  Country: None (occurrence: None)
  Receive Date: 20100629
  Receipt Date: 20080104
  Transmission Date: 20101027
  Serious: No
  Sender: FDA-Public Use
  Company Number: US-PFIZER INC-2008001540

PATIENT
  Sex: Female
  Weight: 45.36 kg

DRUGS (2)
  1. ZYVOX [Suspect]
     Dates: start: 20071229
  2. PROCRIT [Concomitant]
     Indication: ANAEMIA

REACTIONS (4)
  - ERYTHEMA [None]
  - JOINT SWELLING [None]
  - OEDEMA PERIPHERAL [None]
  - SWELLING [None]
